FAERS Safety Report 12709576 (Version 2)
Quarter: 2016Q4

REPORT INFORMATION
  Report Type: Spontaneous
  Country: FR (occurrence: FR)
  Receive Date: 20160902
  Receipt Date: 20161102
  Transmission Date: 20170207
  Serious: Yes (Life-Threatening, Other)
  Sender: FDA-Public Use
  Company Number: FR-009507513-1608FRA014397

PATIENT
  Age: 36 Year
  Sex: Female

DRUGS (3)
  1. ESMERON [Suspect]
     Active Substance: ROCURONIUM BROMIDE
     Indication: ANAESTHESIA
     Dosage: 100 MG, ONCE
     Dates: start: 20160720, end: 20160720
  2. CEFAZOLIN [Concomitant]
     Active Substance: CEFAZOLIN
     Dosage: 3 G, UNK
     Route: 042
  3. DIPRIVAN [Concomitant]
     Active Substance: PROPOFOL
     Dosage: 200 MG, UNK
     Route: 042

REACTIONS (3)
  - Cardiac arrest [Recovered/Resolved]
  - Bronchospasm [Recovered/Resolved]
  - Tachycardia [Recovered/Resolved]

NARRATIVE: CASE EVENT DATE: 20160720
